FAERS Safety Report 5710606-5 (Version None)
Quarter: 2008Q2

REPORT INFORMATION
  Report Type: 
  Country: None (occurrence: None)
  Receive Date: 20080415
  Receipt Date: 20080403
  Transmission Date: 20081010
  Serious: Yes (Other)
  Sender: FDA-Public Use
  Company Number: 2008BI003470

PATIENT
  Age: 47 Year
  Sex: Female
  Weight: 47.6277 kg

DRUGS (13)
  1. AVONEX [Suspect]
     Indication: MULTIPLE SCLEROSIS
     Dosage: 30 UG; QW; IM
     Route: 030
     Dates: start: 20010201
  2. NEURONTIN [Concomitant]
  3. BACLOFEN [Concomitant]
  4. MIRAPEX [Concomitant]
  5. VERAPAMIL [Concomitant]
  6. TOPAMAX [Concomitant]
  7. MINOCYCLINE HCL [Concomitant]
  8. TRAVATAN [Concomitant]
  9. FOSAMAX [Concomitant]
  10. VITAMIN B-12 [Concomitant]
  11. EVENING PRIMROSE OIL [Concomitant]
  12. FISH OIL [Concomitant]
  13. CALCIUM [Concomitant]

REACTIONS (12)
  - ASTHENIA [None]
  - COUGH [None]
  - CYST [None]
  - DIARRHOEA [None]
  - DIPLOPIA [None]
  - HYPOAESTHESIA [None]
  - LYMPHADENOPATHY [None]
  - MUSCULAR WEAKNESS [None]
  - NASOPHARYNGITIS [None]
  - NECK PAIN [None]
  - PARAESTHESIA [None]
  - RENAL MASS [None]
